FAERS Safety Report 24838697 (Version 2)
Quarter: 2025Q3

REPORT INFORMATION
  Report Type: Spontaneous
  Country: CN (occurrence: CN)
  Receive Date: 20250113
  Receipt Date: 20250901
  Transmission Date: 20251021
  Serious: Yes (Other)
  Sender: BEIGENE
  Company Number: CN-ROCHE-3573367

PATIENT
  Age: 81 Year
  Weight: 70.9 kg

DRUGS (13)
  1. BRUKINSA [Suspect]
     Active Substance: ZANUBRUTINIB
     Indication: Diffuse large B-cell lymphoma
  2. MABTHERA [Suspect]
     Active Substance: RITUXIMAB
     Indication: Diffuse large B-cell lymphoma
  3. LENALIDOMIDE [Suspect]
     Active Substance: LENALIDOMIDE
     Indication: Diffuse large B-cell lymphoma
  4. POLATUZUMAB VEDOTIN [Suspect]
     Active Substance: POLATUZUMAB VEDOTIN
     Indication: Diffuse large B-cell lymphoma
  5. FEBUXOSTAT [Concomitant]
     Active Substance: FEBUXOSTAT
  6. ATORVASTATIN CALCIUM [Concomitant]
     Active Substance: ATORVASTATIN CALCIUM
  7. SODIUM BICARBONATE [Concomitant]
     Active Substance: SODIUM BICARBONATE
  8. TORSEMIDE [Concomitant]
     Active Substance: TORSEMIDE
  9. SULFAMETHOXAZOLE [Concomitant]
     Active Substance: SULFAMETHOXAZOLE
  10. PREDNISONE ACETATE [Concomitant]
     Active Substance: PREDNISONE ACETATE
  11. LEUCOGEN [Concomitant]
     Active Substance: LEUCOGEN
  12. INSULIN ASPART [Concomitant]
     Active Substance: INSULIN ASPART
  13. METHYLPREDNISOLONE SODIUM SUCCINATE [Concomitant]
     Active Substance: METHYLPREDNISOLONE SODIUM SUCCINATE

REACTIONS (8)
  - White blood cell count decreased [Unknown]
  - Hypoproteinaemia [Unknown]
  - Hyperkalaemia [Unknown]
  - Fatigue [Unknown]
  - Neutrophil count decreased [Unknown]
  - Platelet count decreased [Unknown]
  - Anaemia [Unknown]
  - Off label use [Unknown]
